FAERS Safety Report 5163655-2 (Version None)
Quarter: 2006Q4

REPORT INFORMATION
  Report Type: 
  Country: None (occurrence: None)
  Receive Date: 20061127
  Receipt Date: 20061127
  Transmission Date: 20070319
  Serious: Yes (Hospitalization, Other)
  Sender: FDA-Public Use
  Company Number: None

PATIENT
  Age: 75 Year
  Sex: Male
  Weight: 61.2356 kg

DRUGS (1)
  1. CLINDAMYCIN [Suspect]
     Indication: GINGIVAL INFECTION
     Dosage: 1 CAPSULE 4 TIMES DAILY PO
     Route: 048
     Dates: start: 20060708, end: 20060714

REACTIONS (8)
  - ANOREXIA [None]
  - ANXIETY [None]
  - DEPRESSION [None]
  - GASTRITIS [None]
  - NAUSEA [None]
  - ORAL INTAKE REDUCED [None]
  - RASH [None]
  - WEIGHT DECREASED [None]
